FAERS Safety Report 5812638-5 (Version None)
Quarter: 2008Q3

REPORT INFORMATION
  Report Type: 
  Country: None (occurrence: None)
  Receive Date: 20080717
  Receipt Date: 20080627
  Transmission Date: 20090109
  Serious: Yes (Other)
  Sender: FDA-Public Use
  Company Number: BR-BAYER-BR-2007-004916

PATIENT
  Age: 55 Year
  Sex: Female
  Weight: 39 kg

DRUGS (2)
  1. BETAFERON [Suspect]
     Indication: MULTIPLE SCLEROSIS
     Route: 058
     Dates: start: 20010101, end: 20070101
  2. DORFLEX [Concomitant]
     Indication: HEADACHE
     Route: 048

REACTIONS (4)
  - ANOREXIA [None]
  - MULTIPLE SCLEROSIS [None]
  - WEIGHT DECREASED [None]
  - WHITE BLOOD CELL COUNT ABNORMAL [None]
